FAERS Safety Report 4455158-5 (Version None)
Quarter: 2004Q3

REPORT INFORMATION
  Report Type: 
  Country: None (occurrence: None)
  Receive Date: 20040917
  Receipt Date: 20040909
  Transmission Date: 20050211
  Serious: Yes (Death)
  Sender: FDA-Public Use
  Company Number: USA-2004-0016756

PATIENT
  Sex: Male

DRUGS (1)
  1. MS CONTIN [Suspect]
     Indication: CANCER PAIN
     Dosage: 60 MG, Q12H

REACTIONS (3)
  - AGGRESSION [None]
  - MALIGNANT NEOPLASM PROGRESSION [None]
  - PARANOIA [None]
